FAERS Safety Report 8151553-1 (Version None)
Quarter: 2012Q1

REPORT INFORMATION
  Report Type: 
  Country: None (occurrence: None)
  Receive Date: 20120220
  Receipt Date: 20120117
  Transmission Date: 20120608
  Serious: Yes (Hospitalization)
  Sender: FDA-Public Use
  Company Number: ES-ROCHE-768820

PATIENT
  Age: 79 Year
  Sex: Female

DRUGS (6)
  1. NEULASTA [Suspect]
     Indication: CHEMOTHERAPY
     Route: 058
  2. KYTRIL [Suspect]
     Indication: PROPHYLAXIS
     Dosage: DAILY DOSE: 1 MG/ML
     Route: 042
     Dates: start: 20101018, end: 20101022
  3. DEXAMETHASONE [Suspect]
     Indication: LUNG NEOPLASM MALIGNANT
     Route: 042
     Dates: start: 20101018, end: 20101022
  4. PARACETAMOL [Concomitant]
  5. OMEPRAZOLE [Concomitant]
  6. TOPOTECAN [Suspect]
     Indication: PRODUCT USED FOR UNKNOWN INDICATION
     Route: 042
     Dates: start: 20101018, end: 20101022

REACTIONS (1)
  - HEPATITIS CHOLESTATIC [None]
